FAERS Safety Report 9786953 (Version 2)
Quarter: 2014Q1

REPORT INFORMATION
  Report Type: Spontaneous
  Country: GB (occurrence: GB)
  Receive Date: 20131227
  Receipt Date: 20140122
  Transmission Date: 20141002
  Serious: Yes (Hospitalization, Congenital Anomaly, Other)
  Sender: FDA-Public Use
  Company Number: GB-WATSON-2013-23385

PATIENT
  Age: 1 Year
  Sex: Male

DRUGS (14)
  1. HALOPERIDOL (UNKNOWN) [Suspect]
     Indication: SCHIZOPHRENIA, PARANOID TYPE
     Dosage: 5 MG, BID
     Route: 064
     Dates: start: 20111229, end: 20120104
  2. HALOPERIDOL (UNKNOWN) [Suspect]
     Dosage: 5 MG, TID
     Route: 064
     Dates: start: 20120105, end: 20120109
  3. PROMETHAZINE (UNKNOWN) [Suspect]
     Indication: PRODUCT USED FOR UNKNOWN INDICATION
     Dosage: 25 MG, PRN
     Route: 064
     Dates: start: 20111216
  4. CYCLIZINE (UNKNOWN) [Suspect]
     Indication: PRODUCT USED FOR UNKNOWN INDICATION
     Dosage: 50 MG, UNKNOWN
     Route: 064
     Dates: start: 20111228, end: 20120131
  5. CHLORPROMAZINE HYDROCHLORIDE (WATSON LABORATORIES) [Suspect]
     Indication: SCHIZOPHRENIA, PARANOID TYPE
     Dosage: 200 MG, TID
     Route: 064
     Dates: start: 20120109, end: 20120114
  6. CHLORPROMAZINE HYDROCHLORIDE (WATSON LABORATORIES) [Suspect]
     Dosage: 25 MG, TID
     Route: 064
     Dates: start: 20111215, end: 20111219
  7. ZOPICLONE (UNKNOWN) [Suspect]
     Indication: INSOMNIA
     Dosage: 15 MG, UNKNOWN
     Route: 064
     Dates: start: 20120210, end: 20120718
  8. OLANZAPINE (UNKNOWN) [Suspect]
     Indication: PRODUCT USED FOR UNKNOWN INDICATION
     Dosage: 5 MG, DAILY
     Route: 064
     Dates: start: 20120112, end: 20120114
  9. RISPERDAL [Suspect]
     Indication: SCHIZOPHRENIA, PARANOID TYPE
     Dosage: 3 MG, BID
     Route: 064
     Dates: start: 20120308, end: 20120609
  10. RISPERDAL [Suspect]
     Dosage: UNK
     Route: 064
     Dates: start: 20120221, end: 20120307
  11. RISPERDAL [Suspect]
     Dosage: UNK
     Route: 064
     Dates: start: 20120609, end: 20120821
  12. ALCOHOL [Suspect]
     Indication: PRODUCT USED FOR UNKNOWN INDICATION
     Dosage: UNK
     Route: 064
  13. ENTONOX [Suspect]
     Indication: ANALGESIC THERAPY
     Dosage: UNK; AS NECESSARY
     Route: 064
     Dates: start: 20120718, end: 20120718
  14. SYNTOMETRINE /01846101/ [Suspect]
     Indication: PRODUCT USED FOR UNKNOWN INDICATION
     Dosage: UNK
     Route: 064
     Dates: start: 20120718, end: 20120718

REACTIONS (5)
  - Dextrocardia [Unknown]
  - Visual impairment [Unknown]
  - Foetal alcohol syndrome [Unknown]
  - Drug withdrawal syndrome [Unknown]
  - Foetal exposure during pregnancy [Recovered/Resolved]
